FAERS Safety Report 4945829-6 (Version None)
Quarter: 2006Q1

REPORT INFORMATION
  Report Type: 
  Country: None (occurrence: None)
  Receive Date: 20060117
  Receipt Date: 20050223
  Transmission Date: 20060701
  Serious: Yes (Hospitalization)
  Sender: FDA-Public Use
  Company Number: A03200500529

PATIENT
  Age: 72 Year
  Sex: Female
  Weight: 68.0396 kg

DRUGS (7)
  1. PLAVIX [Suspect]
     Indication: ANGIOPLASTY
     Dosage: 75 MG QD - ORAL
     Route: 048
     Dates: start: 20050101, end: 20050301
  2. PLAVIX [Suspect]
     Indication: STENT PLACEMENT
     Dosage: 75 MG QD - ORAL
     Route: 048
     Dates: start: 20050101, end: 20050301
  3. PLAVIX [Suspect]
     Indication: ANGIOPLASTY
     Dosage: MG EVERY OTHER DAY - ORAL
     Route: 048
     Dates: start: 20050301
  4. PLAVIX [Suspect]
     Indication: STENT PLACEMENT
     Dosage: MG EVERY OTHER DAY - ORAL
     Route: 048
     Dates: start: 20050301
  5. ACETYLSALICYLIC ACID SRT [Concomitant]
  6. CELECOXIB [Concomitant]
  7. ALPRAZOLAM [Concomitant]

REACTIONS (14)
  - ASTHENIA [None]
  - BACK PAIN [None]
  - CHEST PAIN [None]
  - CONDITION AGGRAVATED [None]
  - DIARRHOEA [None]
  - DYSPNOEA [None]
  - GASTROOESOPHAGEAL REFLUX DISEASE [None]
  - INFLUENZA LIKE ILLNESS [None]
  - NAUSEA [None]
  - STOMACH DISCOMFORT [None]
  - TREMOR [None]
  - VERTIGO [None]
  - VISION BLURRED [None]
  - WEIGHT DECREASED [None]
